FAERS Safety Report 9380368 (Version 2)
Quarter: 2013Q3

REPORT INFORMATION
  Report Type: Spontaneous
  Country: BE (occurrence: BE)
  Receive Date: 20130702
  Receipt Date: 20130726
  Transmission Date: 20140515
  Serious: Yes (Life-Threatening, Hospitalization)
  Sender: FDA-Public Use
  Company Number: BE-ASTRAZENECA-2013SE49859

PATIENT
  Age: 9803 Day
  Sex: Male
  Weight: 70 kg

DRUGS (3)
  1. SEROQUEL XR [Suspect]
     Indication: PSYCHOTIC DISORDER
     Route: 048
     Dates: start: 20130420
  2. SEROQUEL XR [Suspect]
     Indication: PSYCHOTIC DISORDER
     Dosage: TOTAL DOSE: 21 G, HAD TAKEN 70 TABLETS OF 300 MG
     Route: 048
     Dates: start: 20130420
  3. CANNABIS [Concomitant]
     Dosage: HAD CONSUMED 1 G OF CANNABIS

REACTIONS (2)
  - Intentional overdose [Recovered/Resolved]
  - Suicide attempt [Recovered/Resolved]
